FAERS Safety Report 7725400-3 (Version None)
Quarter: 2011Q3

REPORT INFORMATION
  Report Type: 
  Country: None (occurrence: None)
  Receive Date: 20110829
  Receipt Date: 20110819
  Transmission Date: 20111222
  Serious: Yes (Hospitalization)
  Sender: FDA-Public Use
  Company Number: CIP11002072

PATIENT
  Sex: Female
  Weight: 45.5 kg

DRUGS (6)
  1. ACTONEL [Suspect]
     Indication: OSTEOPOROSIS
     Dosage: 150 MG ONCE MONTHLY, ORAL
     Route: 048
     Dates: start: 20110413, end: 20110813
  2. CEWIN (ASCORBIC ACID) [Concomitant]
  3. SIMVASTATIN [Concomitant]
  4. ASPIRIN [Concomitant]
  5. OSCAL D /00944201/ (CALCIUM CARBONATE, COLECALCIFEROL) [Concomitant]
  6. CLOPIDOGREL [Concomitant]

REACTIONS (6)
  - ASTHENIA [None]
  - WEIGHT DECREASED [None]
  - DIARRHOEA [None]
  - VOMITING [None]
  - VIRAL INFECTION [None]
  - BACTERIAL INFECTION [None]
